FAERS Safety Report 5190448-2 (Version None)
Quarter: 2006Q4

REPORT INFORMATION
  Report Type: 
  Country: None (occurrence: None)
  Receive Date: 20061222
  Receipt Date: 20061214
  Transmission Date: 20070319
  Serious: Yes (Death, Hospitalization)
  Sender: FDA-Public Use
  Company Number: GB-ROCHE-475001

PATIENT
  Age: 72 Year
  Sex: Male

DRUGS (12)
  1. CAPECITABINE [Suspect]
     Dosage: GIVEN FOR FOURTEEN DAYS FOLLOWED BY A WEEK REST OF EACH THREE-WEEK-CYCLE.
     Route: 048
     Dates: start: 20040726, end: 20050709
  2. GEMCITABINE [Suspect]
     Dosage: TDD REPORTED AS 750 MG = 1310 MG.
     Route: 042
     Dates: start: 20040726, end: 20060709
  3. INSULATARD HUMAN [Concomitant]
     Dosage: TAKEN IN THE MORNING.
     Route: 058
  4. CREON [Concomitant]
     Indication: PANCREATITIS
     Dosage: TAKEN IN THE MORNING AND IN THE EVENING. TDD REPORTED AS 75000.
     Route: 048
     Dates: start: 20040615, end: 20050709
  5. AMLODIPINE [Concomitant]
     Indication: HYPERTENSION
     Route: 048
  6. LISINOPRIL [Concomitant]
     Indication: HYPERTENSION
     Dosage: DRUG NAME REPORTED AS LISINOPRIL AND LIRSINOPRILUM.
     Route: 048
     Dates: end: 20050704
  7. ZOPICLONE [Concomitant]
     Indication: INSOMNIA
     Route: 048
     Dates: end: 20050708
  8. DICLOFENAC SODIUM [Concomitant]
     Indication: PAIN
     Dates: end: 20050701
  9. INSULATARD NPH HUMAN [Concomitant]
     Route: 058
     Dates: start: 20020715, end: 20050708
  10. ACETAMINOPHEN [Concomitant]
     Indication: PAIN
     Route: 048
     Dates: end: 20050708
  11. DIHYDROCODEINE BITARTRATE INJ [Concomitant]
     Indication: PAIN
     Route: 048
     Dates: end: 20050708
  12. OMEPRAZOLE [Concomitant]
     Indication: ULCER
     Dosage: TDD WAS 40 MG FROM 08 JULY 2005 TO 09 JULY 2005.
     Route: 048
     Dates: end: 20050709

REACTIONS (7)
  - ANAEMIA [None]
  - HAEMATEMESIS [None]
  - HYPOTENSION [None]
  - LOCALISED INFECTION [None]
  - OESOPHAGEAL DILATATION [None]
  - RENAL FAILURE ACUTE [None]
  - VOMITING [None]
